FAERS Safety Report 13526048 (Version 1)
Quarter: 2017Q2

REPORT INFORMATION
  Report Type: Spontaneous
  Country: US (occurrence: US)
  Receive Date: 20170508
  Receipt Date: 20170508
  Transmission Date: 20170830
  Serious: No
  Sender: FDA-Public Use
  Company Number: None

PATIENT
  Age: 57 Year
  Sex: Female

DRUGS (1)
  1. SOVALDI [Suspect]
     Active Substance: SOFOSBUVIR

REACTIONS (7)
  - Drug dose omission [None]
  - Nausea [None]
  - Influenza like illness [None]
  - Headache [None]
  - Depression [None]
  - Middle insomnia [None]
  - Somnolence [None]

NARRATIVE: CASE EVENT DATE: 20170508
